FAERS Safety Report 10424925 (Version 1)
Quarter: 2014Q3

REPORT INFORMATION
  Report Type: Spontaneous
  Country: US (occurrence: None)
  Receive Date: 20140722
  Receipt Date: 20140722
  Transmission Date: 20150326
  Serious: No
  Sender: FDA-Public Use
  Company Number: 163-10004-14050123

PATIENT
  Age: 56 Year
  Sex: Male
  Weight: 90.27 kg

DRUGS (8)
  1. OTEZLA [Suspect]
     Active Substance: APREMILAST
     Indication: PSORIATIC ARTHROPATHY
     Route: 048
     Dates: start: 20140417
  2. CYMBALTA [Concomitant]
     Active Substance: DULOXETINE HYDROCHLORIDE
  3. LISINOPRIL. [Concomitant]
     Active Substance: LISINOPRIL
  4. AMLODIFINE (AMLODIPINE) [Concomitant]
  5. TRICOR [Concomitant]
     Active Substance: FENOFIBRATE
  6. NORCO (VICODINE) [Concomitant]
  7. BYSTOLIC [Concomitant]
     Active Substance: NEBIVOLOL HYDROCHLORIDE
  8. GLYBURIDE (BLIBENCLAMIDE) [Concomitant]

REACTIONS (1)
  - Nausea [None]
